FAERS Safety Report 5750208-8 (Version None)
Quarter: 2008Q2

REPORT INFORMATION
  Report Type: 
  Country: None (occurrence: None)
  Receive Date: 20080527
  Receipt Date: 20080516
  Transmission Date: 20081010
  Serious: Yes (Hospitalization)
  Sender: FDA-Public Use
  Company Number: FR-PFIZER INC-2008042884

PATIENT
  Sex: Female

DRUGS (7)
  1. TRIFLUCAN [Suspect]
     Indication: ORAL CANDIDIASIS
     Route: 048
     Dates: start: 20080222, end: 20080306
  2. OFLOXACIN [Suspect]
     Indication: URINARY TRACT INFECTION
     Route: 048
     Dates: start: 20080215, end: 20080302
  3. ACTONEL [Concomitant]
  4. FONZYLANE [Concomitant]
  5. PLAVIX [Concomitant]
  6. TRAMADOL HCL [Concomitant]
  7. TENSTATEN [Concomitant]

REACTIONS (1)
  - TENDONITIS [None]
